FAERS Safety Report 7075447-8 (Version None)
Quarter: 2010Q4

REPORT INFORMATION
  Report Type: 
  Country: None (occurrence: None)
  Receive Date: 20101030
  Receipt Date: 20100910
  Transmission Date: 20110411
  Serious: No
  Sender: FDA-Public Use
  Company Number: US-WYE-H17496810

PATIENT
  Sex: Female
  Weight: 38.59 kg

DRUGS (2)
  1. PRISTIQ [Suspect]
     Indication: DEPRESSION
     Dates: start: 20100401
  2. PRISTIQ [Suspect]
     Indication: ANXIETY

REACTIONS (10)
  - CONSTIPATION [None]
  - DECREASED APPETITE [None]
  - DIZZINESS [None]
  - FATIGUE [None]
  - IMPAIRED DRIVING ABILITY [None]
  - INSOMNIA [None]
  - NAUSEA [None]
  - POOR QUALITY SLEEP [None]
  - SOMNOLENCE [None]
  - WEIGHT DECREASED [None]
